FAERS Safety Report 23062646 (Version 4)
Quarter: 2024Q1

REPORT INFORMATION
  Report Type: Spontaneous
  Country: CA (occurrence: CA)
  Receive Date: 20231013
  Receipt Date: 20240312
  Transmission Date: 20240410
  Serious: Yes (Hospitalization)
  Sender: FDA-Public Use
  Company Number: CA-PFIZER INC-202201113553

PATIENT
  Age: 39 Year
  Sex: Female
  Weight: 70 kg

DRUGS (5)
  1. ABRILADA [Suspect]
     Active Substance: ADALIMUMAB-AFZB
     Indication: Crohn^s disease
     Dosage: EVERY 14 DAYS
     Route: 058
     Dates: start: 20220520
  2. ABRILADA [Suspect]
     Active Substance: ADALIMUMAB-AFZB
     Dosage: EVERY 14 DAYS
     Route: 058
     Dates: start: 20220909
  3. ABRILADA [Suspect]
     Active Substance: ADALIMUMAB-AFZB
     Dosage: EVERY 14 DAYS
     Route: 058
  4. ABRILADA [Suspect]
     Active Substance: ADALIMUMAB-AFZB
     Dosage: WEEKLY
     Route: 058
  5. ABRILADA [Suspect]
     Active Substance: ADALIMUMAB-AFZB
     Dosage: WEEKLY
     Route: 058
     Dates: start: 20240302

REACTIONS (21)
  - Viraemia [Unknown]
  - Headache [Not Recovered/Not Resolved]
  - Myalgia [Unknown]
  - Hyperthermia [Unknown]
  - Condition aggravated [Recovered/Resolved]
  - Vomiting [Unknown]
  - Nausea [Unknown]
  - Therapeutic product effect incomplete [Unknown]
  - COVID-19 [Recovering/Resolving]
  - Urticaria [Recovered/Resolved]
  - Defaecation urgency [Recovering/Resolving]
  - Illness [Not Recovered/Not Resolved]
  - Chills [Not Recovered/Not Resolved]
  - Fatigue [Not Recovered/Not Resolved]
  - Asthenia [Not Recovered/Not Resolved]
  - Gastritis viral [Recovering/Resolving]
  - Enzyme abnormality [Unknown]
  - Pyrexia [Recovering/Resolving]
  - Eating disorder [Recovering/Resolving]
  - Fistula [Unknown]
  - Off label use [Unknown]

NARRATIVE: CASE EVENT DATE: 20220101
